FAERS Safety Report 7510350-8 (Version None)
Quarter: 2011Q2

REPORT INFORMATION
  Report Type: 
  Country: None (occurrence: None)
  Receive Date: 20110527
  Receipt Date: 20110513
  Transmission Date: 20111010
  Serious: Yes (Other)
  Sender: FDA-Public Use
  Company Number: PT-WATSON-2011-06114

PATIENT
  Age: 78 Year
  Sex: Female

DRUGS (3)
  1. METHOTREXATE [Suspect]
     Indication: BREAST CANCER
  2. FLUOROURACIL [Suspect]
     Indication: BREAST CANCER
     Dosage: UNK
  3. CYCLOPHOSPHAMIDE [Suspect]
     Indication: BREAST CANCER

REACTIONS (1)
  - TOXIC SKIN ERUPTION [None]
